FAERS Safety Report 12595441 (Version 3)
Quarter: 2016Q3

REPORT INFORMATION
  Report Type: Report from Study
  Country: CA (occurrence: CA)
  Receive Date: 20160726
  Receipt Date: 20160817
  Transmission Date: 20161109
  Serious: Yes (Hospitalization, Other)
  Sender: FDA-Public Use
  Company Number: CA-TAKEDA-2016TUS012392

PATIENT
  Age: 43 Year
  Sex: Female
  Weight: 59.1 kg

DRUGS (2)
  1. HUMIRA [Concomitant]
     Active Substance: ADALIMUMAB
     Dosage: UNK
  2. VEDOLIZUMAB [Suspect]
     Active Substance: VEDOLIZUMAB
     Indication: COLITIS ULCERATIVE
     Dosage: 300 MG, UNK
     Route: 042
     Dates: start: 20160608, end: 20160622

REACTIONS (12)
  - Colitis [Unknown]
  - Blood electrolytes abnormal [Unknown]
  - Post procedural complication [Unknown]
  - Dyspnoea exertional [Recovered/Resolved]
  - Burning sensation [Unknown]
  - Liver function test increased [Unknown]
  - Haematochezia [Unknown]
  - Fatigue [Not Recovered/Not Resolved]
  - Renal failure [Unknown]
  - Dehydration [Unknown]
  - Diplopia [Recovered/Resolved]
  - Muscle spasms [Recovered/Resolved]

NARRATIVE: CASE EVENT DATE: 201606
